FAERS Safety Report 8123045 (Version 3)
Quarter: 2014Q1

REPORT INFORMATION
  Report Type: Spontaneous
  Country: US (occurrence: US)
  Receive Date: 20110906
  Receipt Date: 20140328
  Transmission Date: 20141002
  Serious: Yes (Hospitalization, Other)
  Sender: FDA-Public Use
  Company Number: US-ASTRAZENECA-2011SE05876

PATIENT
  Age: 83 Year
  Sex: Female
  Weight: 67.6 kg

DRUGS (6)
  1. NEXIUM [Suspect]
     Indication: GASTROOESOPHAGEAL REFLUX DISEASE
     Route: 048
     Dates: start: 2001
  2. PRILOSEC [Suspect]
     Indication: GASTROOESOPHAGEAL REFLUX DISEASE
     Dosage: UNKNOWN DAILY, STOPPED IN 2001
     Route: 048
  3. FUROSEMIDE [Concomitant]
     Indication: DIURETIC THERAPY
     Dosage: 20 MG ONCE DAILY AS NEEDED X 6 YEARS
  4. BETAPACE [Concomitant]
     Indication: CARDIAC DISORDER
     Dosage: 240 MG BID X 15 YEARS
  5. LEVOTHYROXINE [Concomitant]
     Indication: THYROID DISORDER
     Dosage: 75 MCG ONCE DAILY X 4 YEARS
  6. ISOSORBIDE [Concomitant]
     Indication: BLOOD DISORDER
     Dosage: 60 MG ONCE DAILY X 5 YEARS

REACTIONS (8)
  - Cardiac disorder [Not Recovered/Not Resolved]
  - Cerebrovascular accident [Not Recovered/Not Resolved]
  - Gastrooesophageal reflux disease [Unknown]
  - Gait disturbance [Not Recovered/Not Resolved]
  - Meniere^s disease [Not Recovered/Not Resolved]
  - Hypoacusis [Unknown]
  - Abdominal discomfort [Unknown]
  - Intentional drug misuse [Unknown]
